FAERS Safety Report 6943079-5 (Version None)
Quarter: 2010Q3

REPORT INFORMATION
  Report Type: 
  Country: None (occurrence: None)
  Receive Date: 20100826
  Receipt Date: 20100817
  Transmission Date: 20110219
  Serious: Yes (Hospitalization)
  Sender: FDA-Public Use
  Company Number: GXKR2010GB09199

PATIENT
  Age: 42 Year
  Sex: Male

DRUGS (2)
  1. CISPLATIN [Suspect]
     Indication: OESOPHAGEAL ADENOCARCINOMA
     Route: 042
  2. FLUOROURACIL [Suspect]
     Indication: OESOPHAGEAL ADENOCARCINOMA
     Route: 042

REACTIONS (11)
  - AORTIC THROMBOSIS [None]
  - ASTHENIA [None]
  - FASCIOTOMY [None]
  - INTRACARDIAC THROMBUS [None]
  - PAIN IN EXTREMITY [None]
  - PALLOR [None]
  - PARAESTHESIA [None]
  - PERIPHERAL COLDNESS [None]
  - PULSE ABSENT [None]
  - RENAL INFARCT [None]
  - THROMBOEMBOLECTOMY [None]
